FAERS Safety Report 9296581 (Version 2)
Quarter: 2013Q2

REPORT INFORMATION
  Report Type: Spontaneous
  Country: US (occurrence: US)
  Receive Date: 20130517
  Receipt Date: 20130612
  Transmission Date: 20140414
  Serious: Yes (Hospitalization, Other)
  Sender: FDA-Public Use
  Company Number: US-ASTRAZENECA-2013SE31540

PATIENT
  Age: 85 Year
  Sex: Male
  Weight: 82.6 kg

DRUGS (19)
  1. BRILINTA [Suspect]
     Indication: CORONARY ARTERY DISEASE
     Route: 048
     Dates: start: 201304, end: 2013
  2. BRILINTA [Suspect]
     Indication: ACUTE MYOCARDIAL INFARCTION
     Route: 048
     Dates: start: 201304, end: 2013
  3. PRILOSEC [Suspect]
     Route: 048
  4. PRILOSEC [Suspect]
     Route: 048
  5. TOPROL XL [Suspect]
     Route: 048
  6. TOPROL XL [Suspect]
     Route: 048
  7. PLAVIX [Concomitant]
     Dosage: 300 MG, 2 TABLET LOADED ON 18-APR-2013 AND 75 MG THREAFTER
  8. DIAZEPAM [Concomitant]
     Dosage: 2.5MG, DAILY, PRN
     Route: 048
  9. ECOTRIN [Concomitant]
  10. FUROSEMIDE [Concomitant]
     Route: 048
  11. IMDUR [Concomitant]
     Route: 048
  12. LEVOTHYROID [Concomitant]
     Route: 048
  13. LEVOTHYROID [Concomitant]
     Route: 048
  14. ZOCOR [Concomitant]
     Indication: HYPERLIPIDAEMIA
     Route: 048
  15. NITROSTAT [Concomitant]
     Route: 060
  16. CLARITIN [Concomitant]
     Dosage: 1 CAPS, QD, PRN
     Route: 048
  17. ASPIRIN [Concomitant]
     Route: 048
  18. ASPIRIN [Concomitant]
     Route: 048
  19. VITAMIN D3 [Concomitant]

REACTIONS (16)
  - Myocardial infarction [Unknown]
  - Coronary artery occlusion [Unknown]
  - Neoplasm skin [Unknown]
  - Dyspnoea [Recovering/Resolving]
  - Lichenoid keratosis [Unknown]
  - Hyperlipidaemia [Unknown]
  - Lipoma [Unknown]
  - Multiple lentigines syndrome [Unknown]
  - Haemangioma [Unknown]
  - Eczema asteatotic [Unknown]
  - Seborrhoeic keratosis [Unknown]
  - Actinic keratosis [Unknown]
  - Dizziness [Recovering/Resolving]
  - Rash [Recovering/Resolving]
  - Rash [Recovering/Resolving]
  - Off label use [Unknown]
